FAERS Safety Report 18252650 (Version 1)
Quarter: 2020Q3

REPORT INFORMATION
  Report Type: Report from Study
  Country: DE (occurrence: DE)
  Receive Date: 20200910
  Receipt Date: 20200910
  Transmission Date: 20201103
  Serious: Yes (Death)
  Sender: FDA-Public Use
  Company Number: DE-PFIZER INC-2020347977

PATIENT
  Age: 7 Year
  Sex: Female

DRUGS (3)
  1. VP?16 [Suspect]
     Active Substance: ETOPOSIDE
     Indication: ACUTE MYELOID LEUKAEMIA
     Dosage: 150 MG/M2, CYCLIC, (ON DAYS SIX, SEVEN, AND EIGHT) (60 MIN INFUSION)
     Route: 042
  2. CYTARABINE. [Suspect]
     Active Substance: CYTARABINE
     Indication: ACUTE MYELOID LEUKAEMIA
     Dosage: 100 MG/M2, CYCLIC (EVERY 12 HOURS AS A 30?MINUTE INFUSION) (ON DAYS THREE?EIGHT
     Route: 042
  3. DAUNORUBICIN HCL [Suspect]
     Active Substance: DAUNORUBICIN HYDROCHLORIDE
     Indication: ACUTE MYELOID LEUKAEMIA
     Dosage: 60 MG/M2, CYCLIC (ON DAYS THREE, FOUR, AND FIVE)
     Route: 042

REACTIONS (1)
  - Cardiac failure [Fatal]
